FAERS Safety Report 7305445-8 (Version None)
Quarter: 2011Q1

REPORT INFORMATION
  Report Type: 
  Country: None (occurrence: None)
  Receive Date: 20110210
  Receipt Date: 20110128
  Transmission Date: 20110831
  Serious: Yes (Hospitalization)
  Sender: FDA-Public Use
  Company Number: 014305

PATIENT
  Age: 13 Year
  Sex: Male
  Weight: 56 kg

DRUGS (9)
  1. ARGININE [Concomitant]
  2. CLOBAZAM [Suspect]
     Dosage: (5 MG BID) (10 MG BID)
     Dates: end: 20100601
  3. CLOBAZAM [Suspect]
     Dosage: (5 MG BID) (10 MG BID)
     Dates: start: 20100615
  4. MOVICOL /01749801/ [Concomitant]
  5. MIDAZOLAM [Concomitant]
  6. KEPPRA [Suspect]
     Indication: CONVULSION
     Dosage: (800 MG BID) (1 G BID INTRAVENOUS (NOT OTHERWISE SPECIFIED))
     Route: 042
     Dates: end: 20100601
  7. KEPPRA [Suspect]
     Indication: CONVULSION
     Dosage: (800 MG BID) (1 G BID INTRAVENOUS (NOT OTHERWISE SPECIFIED))
     Route: 042
     Dates: start: 20100615
  8. SODIUM BENZOATE [Concomitant]
  9. MULTIVITAMIN /01229101/ [Concomitant]

REACTIONS (6)
  - CONVULSION [None]
  - HYPERAMMONAEMIA [None]
  - ELECTROCARDIOGRAM ABNORMAL [None]
  - DEPRESSED LEVEL OF CONSCIOUSNESS [None]
  - MYDRIASIS [None]
  - STARING [None]
